FAERS Safety Report 20772886 (Version 3)
Quarter: 2022Q3

REPORT INFORMATION
  Report Type: Spontaneous
  Country: US (occurrence: None)
  Receive Date: 20220502
  Receipt Date: 20220922
  Transmission Date: 20221026
  Serious: Yes (Other)
  Sender: FDA-Public Use
  Company Number: US-ROCHE-2576102

PATIENT
  Sex: Female

DRUGS (5)
  1. ERIVEDGE [Suspect]
     Active Substance: VISMODEGIB
     Indication: Congenital anomaly
     Dosage: TAKE 1 CAPSULE BY MOUTH EVERY DAY
     Route: 048
  2. ERIVEDGE [Suspect]
     Active Substance: VISMODEGIB
     Indication: Fibromyalgia
     Route: 048
  3. ERIVEDGE [Suspect]
     Active Substance: VISMODEGIB
     Indication: Myalgia
  4. ERIVEDGE [Suspect]
     Active Substance: VISMODEGIB
     Indication: Loeys-Dietz syndrome
  5. DULOXETINE [Concomitant]
     Active Substance: DULOXETINE

REACTIONS (2)
  - Off label use [Unknown]
  - Pancreatitis [Unknown]
